FAERS Safety Report 15585989 (Version 1)
Quarter: 2018Q4

REPORT INFORMATION
  Report Type: Spontaneous
  Country: US (occurrence: US)
  Receive Date: 20181105
  Receipt Date: 20181105
  Transmission Date: 20190205
  Serious: No
  Sender: FDA-Public Use
  Company Number: US-MCGUFF PHARMACEUTICALS, INC.-2058384

PATIENT
  Age: 48 Year
  Sex: Female

DRUGS (7)
  1. ASCOR [Suspect]
     Active Substance: ASCORBIC ACID
     Route: 041
     Dates: start: 20180912, end: 20180912
  2. TRACE MINERALS [Concomitant]
     Route: 041
     Dates: start: 20180912, end: 20180912
  3. VITAMIN B12 [Concomitant]
     Active Substance: CYANOCOBALAMIN
     Route: 041
     Dates: start: 20180912
  4. STERILE WATER FOR INJECTION [Concomitant]
     Active Substance: WATER
     Route: 041
     Dates: start: 20180912, end: 20180912
  5. B6 [Concomitant]
     Active Substance: PYRIDOXINE HYDROCHLORIDE
     Route: 041
     Dates: start: 20180912, end: 20180912
  6. MAGNESIUM CHLORIDE. [Concomitant]
     Active Substance: MAGNESIUM CHLORIDE
     Route: 041
     Dates: start: 20180912, end: 20180912
  7. B5 [Concomitant]
     Route: 041
     Dates: start: 20180912, end: 20180912

REACTIONS (4)
  - Chills [Recovered/Resolved]
  - Diarrhoea [Recovered/Resolved]
  - Fatigue [Recovered/Resolved]
  - Vomiting [Recovered/Resolved]

NARRATIVE: CASE EVENT DATE: 20180912
